FAERS Safety Report 14907453 (Version 1)
Quarter: 2018Q2

REPORT INFORMATION
  Report Type: Spontaneous
  Country: US (occurrence: US)
  Receive Date: 20180428
  Receipt Date: 20180428
  Transmission Date: 20180711
  Serious: Yes (Life-Threatening, Hospitalization)
  Sender: FDA-Public Use
  Company Number: None

PATIENT
  Age: 8 Year
  Sex: Male
  Weight: 21.15 kg

DRUGS (1)
  1. HYDROCODONE/ACETAMINOPHEN [Suspect]
     Active Substance: ACETAMINOPHEN\HYDROCODONE
     Indication: PROCEDURAL PAIN
     Route: 048
     Dates: start: 20180320, end: 20180328

REACTIONS (9)
  - Dyspnoea [None]
  - Drooling [None]
  - Cardio-respiratory arrest [None]
  - Oxygen saturation decreased [None]
  - Dysphagia [None]
  - Drug hypersensitivity [None]
  - Nail discolouration [None]
  - Eye movement disorder [None]
  - Septic shock [None]

NARRATIVE: CASE EVENT DATE: 20180321
